FAERS Safety Report 9920937 (Version 1)
Quarter: 2014Q1

REPORT INFORMATION
  Report Type: Spontaneous
  Country: DZ (occurrence: DZ)
  Receive Date: 20140225
  Receipt Date: 20140225
  Transmission Date: 20141002
  Serious: Yes (Other)
  Sender: FDA-Public Use
  Company Number: DZ-BIOGENIDEC-2014BI017558

PATIENT
  Age: 46 Year
  Sex: Female
  Weight: 80 kg

DRUGS (1)
  1. AVONEX [Suspect]
     Indication: RELAPSING-REMITTING MULTIPLE SCLEROSIS
     Route: 030
     Dates: start: 20110620

REACTIONS (1)
  - Autoimmune thyroiditis [Unknown]
